FAERS Safety Report 19750633 (Version 1)
Quarter: 2021Q3

REPORT INFORMATION
  Report Type: Spontaneous
  Country: DE (occurrence: DE)
  Receive Date: 20210826
  Receipt Date: 20210826
  Transmission Date: 20211014
  Serious: Yes (Hospitalization)
  Sender: FDA-Public Use
  Company Number: DE-MYLANLABS-2021M1054843

PATIENT
  Age: 79 Year
  Sex: Female
  Weight: 80 kg

DRUGS (10)
  1. TORASEMIDE [Suspect]
     Active Substance: TORSEMIDE
     Indication: PRODUCT USED FOR UNKNOWN INDICATION
     Dosage: 10 MILLIGRAM (10 MG, 1?0.5?0?0, TABLETTEN   )
     Route: 048
  2. METFORMIN [Concomitant]
     Active Substance: METFORMIN HYDROCHLORIDE
     Dosage: 500 MILLIGRAM (500 MG, 1?0?1?0, TABLETTEN)
     Route: 048
  3. LEVODOPA?CARBIDOPA [Concomitant]
     Active Substance: CARBIDOPA\LEVODOPA
     Dosage: UNK, 100|25 MG, 0?0?1?0, TABLETTEN
     Route: 048
  4. RAMIPRIL. [Suspect]
     Active Substance: RAMIPRIL
     Indication: PRODUCT USED FOR UNKNOWN INDICATION
     Dosage: 5 MILLIGRAM, 5 MG, 0.5?0?0.5?0, TABLETTEN
     Route: 048
  5. METOPROLOL. [Concomitant]
     Active Substance: METOPROLOL
     Dosage: 47.5 MILLIGRAM (47.5 MG, 0.5?0?0.5?0, RETARD?TABLETTEN)
     Route: 048
  6. ACETYLSALICYLSAEURE [Concomitant]
     Active Substance: ASPIRIN
     Dosage: 100 MILLIGRAM (100 MG, 1?0?0?0)
  7. ALENDRONIC ACID [Concomitant]
     Active Substance: ALENDRONIC ACID
     Dosage: 70 MILLIGRAM (70 MG/WEEK, FRIDAY)
     Route: 048
  8. ALLOPURINOL. [Suspect]
     Active Substance: ALLOPURINOL
     Indication: PRODUCT USED FOR UNKNOWN INDICATION
     Dosage: 300 MILLIGRAM (300 MG, 0?0?1?0, TABLETTEN)
     Route: 048
  9. COLECALCIFEROL [Concomitant]
     Active Substance: CHOLECALCIFEROL
     Dosage: 20.000 IE /WEEK, FRIDAY, TABLETS
     Route: 048
  10. CEFUROXIM                          /00454601/ [Concomitant]
     Active Substance: CEFUROXIME
     Dosage: 250 MILLIGRAM (250 MG, SEIT 19022020, TABLETTEN)
     Route: 048

REACTIONS (3)
  - General physical health deterioration [Unknown]
  - Hyperglycaemia [Unknown]
  - Condition aggravated [Unknown]
